FAERS Safety Report 21315500 (Version 1)
Quarter: 2022Q3

REPORT INFORMATION
  Report Type: Spontaneous
  Country: US (occurrence: US)
  Receive Date: 20220909
  Receipt Date: 20220909
  Transmission Date: 20221026
  Serious: No
  Sender: FDA-Public Use
  Company Number: US-PAIPHARMA-2022-US-013090

PATIENT
  Age: 63 Year
  Sex: Male
  Weight: 61.24 kg

DRUGS (3)
  1. NORTRIPTYLINE HYDROCHLORIDE [Suspect]
     Active Substance: NORTRIPTYLINE HYDROCHLORIDE
     Indication: Small fibre neuropathy
     Dosage: 5ML ON EMPTY STOMACH BEFORE DINNER AND 3 ML BEFORE BED
     Route: 048
     Dates: start: 20220513
  2. GABAPENTIN [Concomitant]
     Active Substance: GABAPENTIN
  3. Vitamin D + minerals [Concomitant]

REACTIONS (3)
  - Neuropathy peripheral [Not Recovered/Not Resolved]
  - Insomnia [Not Recovered/Not Resolved]
  - Off label use [Not Recovered/Not Resolved]

NARRATIVE: CASE EVENT DATE: 20220514
